FAERS Safety Report 7886048-3 (Version None)
Quarter: 2011Q4

REPORT INFORMATION
  Report Type: 
  Country: None (occurrence: None)
  Receive Date: 20111102
  Receipt Date: 20110623
  Transmission Date: 20120403
  Serious: No
  Sender: FDA-Public Use
  Company Number: US-AMGEN-USASP2011011201

PATIENT
  Age: 32 Year
  Sex: Female

DRUGS (4)
  1. ENBREL [Suspect]
     Dates: start: 20101001
  2. HUMIRA [Concomitant]
  3. ENBREL [Suspect]
     Indication: PSORIASIS
     Dosage: 40 MG, 2 TIMES/WK
     Dates: start: 20101006
  4. ENBREL [Suspect]
     Dosage: UNK

REACTIONS (7)
  - STAPHYLOCOCCAL INFECTION [None]
  - SUBCUTANEOUS ABSCESS [None]
  - BONE GRAFT [None]
  - TOOTH EXTRACTION [None]
  - PSORIASIS [None]
  - SKIN INFECTION [None]
  - THERAPEUTIC RESPONSE DECREASED [None]
